FAERS Safety Report 21105422 (Version 3)
Quarter: 2022Q4

REPORT INFORMATION
  Report Type: Report from Study
  Country: FR (occurrence: FR)
  Receive Date: 20220720
  Receipt Date: 20221007
  Transmission Date: 20230113
  Serious: Yes (Hospitalization)
  Sender: FDA-Public Use
  Company Number: FR-ASTELLAS-2022US025898

PATIENT
  Age: 86 Year
  Sex: Female
  Weight: 42 kg

DRUGS (16)
  1. ENFORTUMAB VEDOTIN [Suspect]
     Active Substance: ENFORTUMAB VEDOTIN
     Indication: Transitional cell carcinoma
     Dosage: 1.25 MG/KG, CYCLIC (ON DAYS 1 AND 8 OF EVERY 3-WEEK CYCLE)
     Route: 042
     Dates: start: 20210908, end: 20220223
  2. ENFORTUMAB VEDOTIN [Suspect]
     Active Substance: ENFORTUMAB VEDOTIN
     Dosage: 1 MG/KG, CYCLIC (ON DAYS 1 AND 8 OF EVERY 3-WEEK CYCLE)
     Route: 042
     Dates: start: 20220316
  3. PEMBROLIZUMAB [Suspect]
     Active Substance: PEMBROLIZUMAB
     Indication: Transitional cell carcinoma
     Dosage: 200 MG, CYCLIC (ON DAY 1 OF EACH 3-WEEK CYCLE)
     Route: 042
     Dates: start: 20210908
  4. CHOLECALCIFEROL [Concomitant]
     Active Substance: CHOLECALCIFEROL
     Indication: Prophylaxis
     Dosage: UNK UNK, UNKNOWN FREQ.
     Route: 065
     Dates: start: 20210805
  5. SODIUM BICARBONATE [Concomitant]
     Active Substance: SODIUM BICARBONATE
     Indication: Prophylaxis
     Dosage: UNK UNK, UNKNOWN FREQ.
     Route: 065
     Dates: start: 20210908
  6. MONTMORILLONITE [Concomitant]
     Active Substance: MONTMORILLONITE
     Indication: Prophylaxis
     Dosage: UNK UNK, UNKNOWN FREQ.
     Route: 065
     Dates: start: 20210908
  7. EMLA [Concomitant]
     Active Substance: LIDOCAINE\PRILOCAINE
     Indication: Pain
     Dosage: UNK UNK, UNKNOWN FREQ.
     Route: 065
     Dates: start: 20210908
  8. Sodium chlorure nirma [Concomitant]
     Indication: Dry eye
     Dosage: UNK UNK, UNKNOWN FREQ.
     Route: 065
     Dates: start: 20210908
  9. CARBOMER [Concomitant]
     Active Substance: CARBOMER
     Indication: Dry eye
     Dosage: UNK UNK, UNKNOWN FREQ.
     Route: 065
     Dates: start: 20210908
  10. SURGRAS PHYSIOLOGI [Concomitant]
     Indication: Dry skin
     Dosage: UNK UNK, UNKNOWN FREQ.
     Route: 065
     Dates: start: 20210908
  11. VITAMIN D [Concomitant]
     Active Substance: VITAMIN D NOS
     Indication: Vitamin D deficiency
     Dosage: UNK UNK, UNKNOWN FREQ.
     Route: 065
     Dates: start: 20220309
  12. PANTOPRAZOLE [Concomitant]
     Active Substance: PANTOPRAZOLE
     Indication: Gastrooesophageal reflux disease
     Dosage: UNK UNK, UNKNOWN FREQ.
     Route: 065
     Dates: start: 20220406
  13. DESLORATADINE [Concomitant]
     Active Substance: DESLORATADINE
     Indication: Lichenoid keratosis
     Dosage: UNK UNK, UNKNOWN FREQ.
     Route: 065
     Dates: start: 20220525
  14. Dexeryl [Concomitant]
     Indication: Lichenoid keratosis
     Dosage: UNK UNK, UNKNOWN FREQ.
     Route: 065
     Dates: start: 20220315
  15. DIPROSONE [Concomitant]
     Active Substance: BETAMETHASONE DIPROPIONATE
     Indication: Lichenoid keratosis
     Dosage: UNK UNK, UNKNOWN FREQ.
     Route: 065
     Dates: start: 20220615
  16. VOGALENE [Concomitant]
     Active Substance: METOPIMAZINE
     Indication: Nausea
     Dosage: UNK UNK, UNKNOWN FREQ.
     Route: 065
     Dates: start: 20220707, end: 20220712

REACTIONS (1)
  - Hypokalaemia [Recovered/Resolved]

NARRATIVE: CASE EVENT DATE: 20220712
